FAERS Safety Report 17621528 (Version 1)
Quarter: 2020Q2

REPORT INFORMATION
  Report Type: Spontaneous
  Country: US (occurrence: US)
  Receive Date: 20200401
  Receipt Date: 20200401
  Transmission Date: 20200713
  Serious: Yes (Death)
  Sender: FDA-Public Use
  Company Number: None

PATIENT
  Age: 70 Year
  Sex: Female

DRUGS (15)
  1. ALECENSA [Suspect]
     Active Substance: ALECTINIB HYDROCHLORIDE
     Indication: LUNG NEOPLASM MALIGNANT
     Route: 048
  2. CRESTOR [Concomitant]
     Active Substance: ROSUVASTATIN CALCIUM
  3. DEXAMETHASONE. [Concomitant]
     Active Substance: DEXAMETHASONE
  4. GABAPENTIN. [Concomitant]
     Active Substance: GABAPENTIN
  5. VIT D [Concomitant]
     Active Substance: VITAMIN D NOS
  6. DEXILANT [Concomitant]
     Active Substance: DEXLANSOPRAZOLE
  7. ERGOCALCIFER [Concomitant]
  8. FLECAINIDE [Concomitant]
     Active Substance: FLECAINIDE
  9. DARIFENACIN. [Concomitant]
     Active Substance: DARIFENACIN
  10. FOLIC ACID. [Concomitant]
     Active Substance: FOLIC ACID
  11. LINZESS [Concomitant]
     Active Substance: LINACLOTIDE
  12. ROSUVASTATIN. [Concomitant]
     Active Substance: ROSUVASTATIN
  13. FAMOTIDINE. [Concomitant]
     Active Substance: FAMOTIDINE
  14. ELIQUIS [Concomitant]
     Active Substance: APIXABAN
  15. NEURONTIN [Concomitant]
     Active Substance: GABAPENTIN

REACTIONS (1)
  - Death [None]
